FAERS Safety Report 4280772-X (Version None)
Quarter: 2004Q1

REPORT INFORMATION
  Report Type: 
  Country: None (occurrence: None)
  Receive Date: 20040127
  Receipt Date: 20040113
  Transmission Date: 20041129
  Serious: Yes (Death)
  Sender: FDA-Public Use
  Company Number: R300947-PAP-USA

PATIENT
  Age: 74 Year
  Sex: Female

DRUGS (2)
  1. ACIPHEX [Suspect]
     Indication: GASTROOESOPHAGEAL REFLUX DISEASE
     Dosage: 20 MG, UNKNOWN, ORAL
     Route: 048
     Dates: end: 20030303
  2. TRANXENE [Concomitant]

REACTIONS (1)
  - CORONARY ARTERY DISEASE [None]
